FAERS Safety Report 16007277 (Version 2)
Quarter: 2019Q3

REPORT INFORMATION
  Report Type: Spontaneous
  Country: US (occurrence: US)
  Receive Date: 20190226
  Receipt Date: 20190703
  Transmission Date: 20191004
  Serious: Yes (Hospitalization, Other)
  Sender: FDA-Public Use
  Company Number: US-PFIZER INC-2019077707

PATIENT
  Age: 61 Year
  Sex: Female
  Weight: 86 kg

DRUGS (5)
  1. LYRICA [Suspect]
     Active Substance: PREGABALIN
     Indication: PAIN
  2. METOPROLOL. [Concomitant]
     Active Substance: METOPROLOL
     Dosage: 37.5 MG, 1X/DAY
     Route: 048
  3. LYRICA [Suspect]
     Active Substance: PREGABALIN
     Indication: NEUROPATHY PERIPHERAL
     Dosage: 100 MG, 3X/DAY
     Route: 048
     Dates: start: 201603
  4. LYRICA [Suspect]
     Active Substance: PREGABALIN
     Indication: MYOTONIC DYSTROPHY
     Dosage: 200 MG, 1X/DAY(100MG TWO CAPSULES AT BEDTIME)
     Route: 048
  5. METOPROLOL. [Concomitant]
     Active Substance: METOPROLOL
     Dosage: 37.5 MG, DAILY; [1 AND ONE-HALF 25 MG EVERY DAY]

REACTIONS (3)
  - Cardiac disorder [Unknown]
  - Somnolence [Not Recovered/Not Resolved]
  - Lymphoma [Recovered/Resolved]

NARRATIVE: CASE EVENT DATE: 201808
